FAERS Safety Report 9677486 (Version 1)
Quarter: 2013Q4

REPORT INFORMATION
  Report Type: Spontaneous
  Country: MX (occurrence: MX)
  Receive Date: 20131108
  Receipt Date: 20131108
  Transmission Date: 20140711
  Serious: Yes (Hospitalization, Other)
  Sender: FDA-Public Use
  Company Number: PHHY2013MX126529

PATIENT
  Age: 60 Year
  Sex: Male

DRUGS (4)
  1. EXFORGE HCT [Suspect]
     Indication: HYPERTENSION
     Dosage: 0.5 DF (320/10/25MG), BID (HALF TABLET IN THE MORNING AND HALF TABLET AT NIGHT)
     Route: 048
     Dates: start: 201201
  2. TRILEPTAL [Concomitant]
     Indication: EPILEPSY
     Dosage: 1 DF (300MG), Q12H
     Dates: start: 2005
  3. KEPPRA [Concomitant]
     Indication: CONVULSION
     Dosage: 2 UKN, Q12H
     Dates: start: 20130923
  4. LOPRESSOR [Concomitant]
     Indication: BLOOD PRESSURE ABNORMAL
     Dosage: 2 UKN, DAILY

REACTIONS (8)
  - Epilepsy [Recovering/Resolving]
  - Convulsion [Recovering/Resolving]
  - Blood potassium abnormal [Recovering/Resolving]
  - Infarction [Unknown]
  - Petit mal epilepsy [Recovering/Resolving]
  - Nervous system disorder [Recovering/Resolving]
  - Dizziness [Recovering/Resolving]
  - Wrong technique in drug usage process [Not Recovered/Not Resolved]
